FAERS Safety Report 13212294 (Version 2)
Quarter: 2017Q1

REPORT INFORMATION
  Report Type: Spontaneous
  Country: US (occurrence: US)
  Receive Date: 20170210
  Receipt Date: 20170315
  Transmission Date: 20170428
  Serious: No
  Sender: FDA-Public Use
  Company Number: US-INCYTE CORPORATION-2017IN000640

PATIENT
  Age: 80 Year
  Sex: Male
  Weight: 74.83 kg

DRUGS (2)
  1. JAKAFI [Suspect]
     Active Substance: RUXOLITINIB
     Indication: MYELOFIBROSIS
     Dosage: 10 MG, BID
     Route: 048
     Dates: start: 20161230, end: 20170130
  2. JAKAFI [Suspect]
     Active Substance: RUXOLITINIB
     Dosage: 20MG
     Route: 048
     Dates: start: 20170121

REACTIONS (3)
  - Pain in extremity [Unknown]
  - Eyelid oedema [Recovered/Resolved]
  - Contusion [Unknown]

NARRATIVE: CASE EVENT DATE: 20170116
